FAERS Safety Report 6905749-4 (Version None)
Quarter: 2010Q3

REPORT INFORMATION
  Report Type: 
  Country: None (occurrence: None)
  Receive Date: 20100804
  Receipt Date: 20100802
  Transmission Date: 20110219
  Serious: Yes (Other)
  Sender: FDA-Public Use
  Company Number: CH-BAYER-201034597GPV

PATIENT
  Age: 0 Hour
  Sex: Male
  Weight: 2.5 kg

DRUGS (6)
  1. ASPIRIN [Suspect]
     Indication: PRODUCT USED FOR UNKNOWN INDICATION
     Route: 064
     Dates: start: 20091117, end: 20100403
  2. METOPROLOL SUCCINATE [Suspect]
     Indication: TACHYCARDIA
     Dosage: TOTAL DAILY DOSE: 50 MG
     Route: 064
     Dates: start: 20090101
  3. CLEXANE [Suspect]
     Indication: PRODUCT USED FOR UNKNOWN INDICATION
     Dosage: TOTAL DAILY DOSE: 0.4 IU
     Route: 064
     Dates: start: 20090101, end: 20100403
  4. LIQUAEMIN INJ [Suspect]
     Indication: PRODUCT USED FOR UNKNOWN INDICATION
     Dosage: TOTAL DAILY DOSE: 15000 IU
     Route: 064
     Dates: start: 20100403, end: 20100416
  5. PANTOZOL [Suspect]
     Indication: PRODUCT USED FOR UNKNOWN INDICATION
     Route: 064
  6. PROCORALAN [Suspect]
     Indication: TACHYCARDIA
     Route: 064
     Dates: end: 20090101

REACTIONS (1)
  - FOETAL GROWTH RESTRICTION [None]
